FAERS Safety Report 15120661 (Version 2)
Quarter: 2018Q3

REPORT INFORMATION
  Report Type: Spontaneous
  Country: AU (occurrence: AU)
  Receive Date: 20180709
  Receipt Date: 20180711
  Transmission Date: 20181010
  Serious: No
  Sender: FDA-Public Use
  Company Number: AU-009507513-1807AUS002286

PATIENT
  Age: 57 Year
  Sex: Female

DRUGS (12)
  1. NOXAFIL [Suspect]
     Active Substance: POSACONAZOLE
     Dosage: UNK
     Dates: start: 20151210
  2. IDARUBICIN HYDROCHLORIDE. [Suspect]
     Active Substance: IDARUBICIN HYDROCHLORIDE
     Indication: ACUTE MYELOID LEUKAEMIA
     Dosage: 12 MG/M2, ONCE DAILY (DAY 1 TO 2)
     Route: 042
     Dates: start: 201601, end: 201601
  3. NOXAFIL [Suspect]
     Active Substance: POSACONAZOLE
     Dosage: UNK
     Dates: start: 20160112
  4. IDARUBICIN HYDROCHLORIDE. [Suspect]
     Active Substance: IDARUBICIN HYDROCHLORIDE
     Dosage: 12 MG/M2, ONCE DAILY (FROM DAY 1 TO 3)
     Route: 042
     Dates: start: 20151027, end: 20151029
  5. CYTARABINE. [Suspect]
     Active Substance: CYTARABINE
     Indication: ACUTE MYELOID LEUKAEMIA
     Dosage: 1000 MG/M2, TWICE DAILY (DAY 1, 3, 5)
     Route: 041
     Dates: start: 201601, end: 201601
  6. CYTARABINE. [Suspect]
     Active Substance: CYTARABINE
     Dosage: 1000 MG/M2, TWICE DAILY (DAY 1, 3, 5)
     Route: 041
     Dates: start: 201512, end: 201512
  7. CYTARABINE. [Suspect]
     Active Substance: CYTARABINE
     Dosage: 100 MG/M2, QD (FROM DAY 1 TO 7)
     Route: 041
     Dates: start: 20151027, end: 20151102
  8. IDARUBICIN HYDROCHLORIDE. [Suspect]
     Active Substance: IDARUBICIN HYDROCHLORIDE
     Dosage: 12 MG/M2, ONCE DAILY (DAY 1 TO 2)
     Route: 042
     Dates: start: 201512, end: 201512
  9. VORICONAZOLE. [Suspect]
     Active Substance: VORICONAZOLE
     Dosage: UNK
     Dates: start: 20151210
  10. VORICONAZOLE. [Suspect]
     Active Substance: VORICONAZOLE
     Dosage: UNK
     Dates: start: 20160112
  11. NOXAFIL [Suspect]
     Active Substance: POSACONAZOLE
     Dosage: UNK
     Dates: start: 20151027
  12. VORICONAZOLE. [Suspect]
     Active Substance: VORICONAZOLE
     Dosage: UNK
     Dates: start: 20151027

REACTIONS (2)
  - Drug effect incomplete [Unknown]
  - Neutrophil count decreased [Unknown]

NARRATIVE: CASE EVENT DATE: 20160104
